FAERS Safety Report 10090542 (Version 1)
Quarter: 2014Q2

REPORT INFORMATION
  Report Type: Spontaneous
  Country: US (occurrence: US)
  Receive Date: 20140421
  Receipt Date: 20140421
  Transmission Date: 20141212
  Serious: No
  Sender: FDA-Public Use
  Company Number: US-PFIZER INC-2014096859

PATIENT
  Age: 40 Year
  Sex: Female

DRUGS (1)
  1. ESOMEPRAZOLE MAGNESIUM [Suspect]
     Indication: DYSPEPSIA
     Dosage: 16 MG, UNK
     Route: 048
     Dates: start: 20140402, end: 20140402

REACTIONS (1)
  - Nausea [Recovered/Resolved]
